FAERS Safety Report 11800676 (Version 1)
Quarter: 2015Q4

REPORT INFORMATION
  Report Type: Spontaneous
  Country: KR (occurrence: KR)
  Receive Date: 20151204
  Receipt Date: 20151204
  Transmission Date: 20160305
  Serious: Yes (Hospitalization)
  Sender: FDA-Public Use
  Company Number: KR-AMGEN-KORCT2015129324

PATIENT
  Age: 41 Year
  Sex: Female

DRUGS (20)
  1. DOXORUBICIN [Concomitant]
     Active Substance: DOXORUBICIN
     Dosage: 85 MG, UNK
     Route: 042
     Dates: start: 20150912, end: 20150912
  2. DOXORUBICIN [Concomitant]
     Active Substance: DOXORUBICIN
     Dosage: 68 MG, UNK
     Route: 042
     Dates: start: 20151114, end: 20151114
  3. G-LASTA [Suspect]
     Active Substance: PEGFILGRASTIM
     Dosage: 6 MG, 1X/3WEEKS
     Route: 058
     Dates: start: 20151004, end: 20151004
  4. DOCETAXEL. [Concomitant]
     Active Substance: DOCETAXEL
     Dosage: 128 MG, UNK
     Route: 042
     Dates: start: 20150912, end: 20150912
  5. DOCETAXEL. [Concomitant]
     Active Substance: DOCETAXEL
     Dosage: 102 MG, UNK
     Route: 042
     Dates: start: 20151114, end: 20151114
  6. DOXORUBICIN [Concomitant]
     Active Substance: DOXORUBICIN
     Dosage: 76.5 MG, UNK
     Route: 042
     Dates: start: 20151024, end: 20151024
  7. DOCETAXEL. [Concomitant]
     Active Substance: DOCETAXEL
     Dosage: 115 MG, UNK
     Route: 042
     Dates: start: 20151024, end: 20151024
  8. DOXORUBICIN [Concomitant]
     Active Substance: DOXORUBICIN
     Dosage: 76.5 MG, UNK
     Route: 042
     Dates: start: 20151003, end: 20151003
  9. CYCLOPHOSPHAMIDE. [Concomitant]
     Active Substance: CYCLOPHOSPHAMIDE
     Dosage: 684 MG, UNK
     Route: 042
     Dates: start: 20151114, end: 20151114
  10. G-LASTA [Suspect]
     Active Substance: PEGFILGRASTIM
     Indication: FEBRILE NEUTROPENIA
     Dosage: 6 MG, 1X/3WEEKS
     Route: 058
     Dates: start: 20150823, end: 20150823
  11. G-LASTA [Suspect]
     Active Substance: PEGFILGRASTIM
     Dosage: 6 MG, 1X/3WEEKS
     Route: 058
     Dates: start: 20151115, end: 20151115
  12. DOCETAXEL. [Concomitant]
     Active Substance: DOCETAXEL
     Dosage: 115 MG, UNK
     Route: 042
     Dates: start: 20151003, end: 20151003
  13. G-LASTA [Suspect]
     Active Substance: PEGFILGRASTIM
     Dosage: 6 MG, 1X/3WEEKS
     Route: 058
     Dates: start: 20150913, end: 20150913
  14. G-LASTA [Suspect]
     Active Substance: PEGFILGRASTIM
     Dosage: 6 MG, 1X/3WEEKS
     Route: 058
     Dates: start: 20151025, end: 20151025
  15. DOXORUBICIN [Concomitant]
     Active Substance: DOXORUBICIN
     Dosage: 85 MG, UNK
     Route: 042
     Dates: start: 20150822, end: 20150822
  16. CYCLOPHOSPHAMIDE. [Concomitant]
     Active Substance: CYCLOPHOSPHAMIDE
     Dosage: 855 MG, UNK
     Route: 042
     Dates: start: 20150912, end: 20150912
  17. DOCETAXEL. [Concomitant]
     Active Substance: DOCETAXEL
     Dosage: 128 MG, UNK
     Route: 042
     Dates: start: 20150822, end: 20150822
  18. CYCLOPHOSPHAMIDE. [Concomitant]
     Active Substance: CYCLOPHOSPHAMIDE
     Dosage: 855 MG, UNK
     Route: 042
     Dates: start: 20150822, end: 20150822
  19. CYCLOPHOSPHAMIDE. [Concomitant]
     Active Substance: CYCLOPHOSPHAMIDE
     Dosage: 769 MG, UNK
     Route: 042
     Dates: start: 20151003, end: 20151003
  20. CYCLOPHOSPHAMIDE. [Concomitant]
     Active Substance: CYCLOPHOSPHAMIDE
     Dosage: 769 MG, UNK
     Route: 042
     Dates: start: 20151024, end: 20151024

REACTIONS (1)
  - Febrile neutropenia [Recovered/Resolved]

NARRATIVE: CASE EVENT DATE: 20151120
